FAERS Safety Report 8319122 (Version 2)
Quarter: 2015Q2

REPORT INFORMATION
  Report Type: Spontaneous
  Country: US (occurrence: US)
  Receive Date: 20120103
  Receipt Date: 20150406
  Transmission Date: 20150821
  Serious: Yes (Life-Threatening, Congenital Anomaly, Other)
  Sender: FDA-Public Use
  Company Number: US-ELI_LILLY_AND_COMPANY-US201112006630

PATIENT
  Age: 0 Day
  Sex: Female

DRUGS (7)
  1. NEXIUM [Concomitant]
     Active Substance: ESOMEPRAZOLE MAGNESIUM
     Indication: FUNGAL INFECTION
     Route: 064
  2. NYSTATIN. [Concomitant]
     Active Substance: NYSTATIN
     Route: 064
  3. CEPHALEXIN                         /00145501/ [Concomitant]
     Active Substance: CEPHALEXIN
     Route: 064
  4. GYNAZOLE-1 [Concomitant]
     Active Substance: BUTOCONAZOLE NITRATE
     Route: 064
  5. FLAGYL [Concomitant]
     Active Substance: METRONIDAZOLE\METRONIDAZOLE HYDROCHLORIDE
     Route: 064
  6. AZITHROMYCIN [Concomitant]
     Active Substance: AZITHROMYCIN ANHYDROUS
     Route: 064
  7. PROZAC [Suspect]
     Active Substance: FLUOXETINE HYDROCHLORIDE
     Indication: PRODUCT USED FOR UNKNOWN INDICATION
     Route: 064

REACTIONS (8)
  - Patent ductus arteriosus [Recovering/Resolving]
  - Pulmonary artery atresia [Recovering/Resolving]
  - Supraventricular tachycardia [Recovering/Resolving]
  - Foetal exposure during pregnancy [Recovered/Resolved]
  - Heterotaxia [Recovering/Resolving]
  - Small for dates baby [Recovered/Resolved]
  - Dextrocardia [Recovering/Resolving]
  - Atrioventricular septal defect [Recovering/Resolving]

NARRATIVE: CASE EVENT DATE: 20060730
